FAERS Safety Report 5477830-0 (Version None)
Quarter: 2007Q4

REPORT INFORMATION
  Report Type: 
  Country: None (occurrence: None)
  Receive Date: 20071004
  Receipt Date: 20070920
  Transmission Date: 20080405
  Serious: Yes (Other)
  Sender: FDA-Public Use
  Company Number: FR-SHR-FR-2007-035679

PATIENT
  Age: 68 Year
  Sex: Male

DRUGS (4)
  1. FLUDARA [Suspect]
     Indication: T-CELL PROLYMPHOCYTIC LEUKAEMIA
     Dosage: 50 MG/D, D1-D3
     Route: 048
     Dates: start: 20060201
  2. CYCLOPHOSPHAMIDE [Suspect]
     Indication: T-CELL PROLYMPHOCYTIC LEUKAEMIA
     Dosage: 600 MG/D, D1-D3
     Route: 048
     Dates: start: 20060201
  3. CAMPATH 30 [Suspect]
     Dosage: 30 MG, 3X/WEEK
     Route: 058
     Dates: start: 20060201
  4. CAMPATH 30 [Suspect]
     Dosage: 30 MG, 1X/MONTH
     Route: 058
     Dates: start: 20060701

REACTIONS (3)
  - B-CELL LYMPHOMA [None]
  - HISTIOCYTOSIS HAEMATOPHAGIC [None]
  - LYMPHOPROLIFERATIVE DISORDER [None]
